FAERS Safety Report 22324106 (Version 1)
Quarter: 2023Q2

REPORT INFORMATION
  Report Type: Spontaneous
  Country: US (occurrence: None)
  Receive Date: 20230512
  Receipt Date: 20230512
  Transmission Date: 20230722
  Serious: Yes (Other)
  Sender: FDA-Public Use
  Company Number: None

PATIENT
  Age: 77 Year
  Sex: Female
  Weight: 58.5 kg

DRUGS (4)
  1. LOTEPREDNOL [Suspect]
     Active Substance: LOTEPREDNOL
     Indication: Dry eye
     Dosage: OTHER QUANTITY : 1 DROP(S);?FREQUENCY : AS NEEDED;?
     Route: 047
  2. CYTOMEL [Concomitant]
     Active Substance: LIOTHYRONINE SODIUM
  3. VITAMIN D3 [Concomitant]
     Active Substance: CHOLECALCIFEROL
  4. CALCIUM [Concomitant]
     Active Substance: CALCIUM

REACTIONS (1)
  - Drug ineffective [None]
